FAERS Safety Report 4557839-1 (Version None)
Quarter: 2005Q1

REPORT INFORMATION
  Report Type: 
  Country: None (occurrence: None)
  Receive Date: 20050118
  Receipt Date: 20050104
  Transmission Date: 20050727
  Serious: Yes (Hospitalization, Disabling)
  Sender: FDA-Public Use
  Company Number: 9606

PATIENT
  Age: 55 Year
  Sex: Male

DRUGS (7)
  1. AMIODARONE HCL [Suspect]
     Indication: SUPRAVENTRICULAR TACHYCARDIA
     Dosage: 200 MG TID
     Route: 048
     Dates: start: 20040622, end: 20040709
  2. SIMVASTATIN [Suspect]
     Indication: BLOOD CHOLESTEROL INCREASED
     Dosage: 40 MG NOCTE
     Route: 048
     Dates: start: 20040418, end: 20040706
  3. CLARITHROMYCIN [Concomitant]
  4. AMLODIPINE [Concomitant]
  5. LANSOPRAZOLE [Concomitant]
  6. IRON [Concomitant]
  7. ACETYLSALICYLIC ACID SRT [Concomitant]

REACTIONS (1)
  - RHABDOMYOLYSIS [None]
